FAERS Safety Report 24976577 (Version 1)
Quarter: 2025Q1

REPORT INFORMATION
  Report Type: Spontaneous
  Country: JP (occurrence: JP)
  Receive Date: 20250217
  Receipt Date: 20250217
  Transmission Date: 20250409
  Serious: Yes (Other)
  Sender: TAKEDA
  Company Number: JP-TAKEDA-2025TUS016279

PATIENT
  Age: 30 Year
  Sex: Female

DRUGS (3)
  1. LIALDA [Suspect]
     Active Substance: MESALAMINE
     Indication: Colitis ulcerative
     Dosage: 4800 MILLIGRAM, QD
  2. ELOBIXIBAT [Suspect]
     Active Substance: ELOBIXIBAT
     Indication: Constipation
     Dosage: 10 MILLIGRAM, QD
  3. MAGNESIUM OXIDE [Concomitant]
     Active Substance: MAGNESIUM OXIDE
     Indication: Constipation

REACTIONS (4)
  - Haematochezia [Recovered/Resolved]
  - Weight decreased [Unknown]
  - Abdominal pain [Recovered/Resolved]
  - Diarrhoea [Recovered/Resolved]
